FAERS Safety Report 9626806 (Version 2)
Quarter: 2013Q4

REPORT INFORMATION
  Report Type: Spontaneous
  Country: CH (occurrence: CH)
  Receive Date: 20131016
  Receipt Date: 20131023
  Transmission Date: 20140711
  Serious: Yes (Other)
  Sender: FDA-Public Use
  Company Number: CH-INCYTE CORPORATION-2013IN002370

PATIENT
  Sex: 0

DRUGS (1)
  1. JAKAVI [Suspect]
     Dosage: UNK UNK, UNK
     Route: 065

REACTIONS (1)
  - Cerebrovascular accident [Unknown]
